FAERS Safety Report 19150823 (Version 1)
Quarter: 2021Q2

REPORT INFORMATION
  Report Type: Spontaneous
  Country: OM (occurrence: OM)
  Receive Date: 20210419
  Receipt Date: 20210419
  Transmission Date: 20210717
  Serious: Yes (Other)
  Sender: FDA-Public Use
  Company Number: OM-ROCHE-2812438

PATIENT
  Sex: Male

DRUGS (1)
  1. EMICIZUMAB. [Suspect]
     Active Substance: EMICIZUMAB
     Indication: PRODUCT USED FOR UNKNOWN INDICATION
     Route: 065

REACTIONS (1)
  - Haemarthrosis [Unknown]
